FAERS Safety Report 8303858 (Version 3)
Quarter: 2013Q4

REPORT INFORMATION
  Report Type: Spontaneous
  Country: US (occurrence: US)
  Receive Date: 20111221
  Receipt Date: 20131211
  Transmission Date: 20140711
  Serious: Yes (Hospitalization, Other)
  Sender: FDA-Public Use
  Company Number: US-BAYER-2011-119974

PATIENT
  Age: 33 Year
  Sex: Female

DRUGS (3)
  1. YAZ [Suspect]
  2. YASMIN [Suspect]
  3. VITAMIN D [Concomitant]
     Dosage: 1.25 MG, UNK
     Dates: start: 20101027

REACTIONS (4)
  - Gallbladder injury [None]
  - Splenic infarction [None]
  - Injury [None]
  - Cholecystitis chronic [None]
